FAERS Safety Report 13740293 (Version 9)
Quarter: 2018Q2

REPORT INFORMATION
  Report Type: Report from Study
  Country: DE (occurrence: DE)
  Receive Date: 20170711
  Receipt Date: 20180416
  Transmission Date: 20180711
  Serious: Yes (Death, Other)
  Sender: FDA-Public Use
  Company Number: DE-BRISTOL-MYERS SQUIBB COMPANY-BMS-2017-061250

PATIENT
  Age: 29 Year
  Sex: Female

DRUGS (2)
  1. IPILIMUMAB [Suspect]
     Active Substance: IPILIMUMAB
     Indication: MALIGNANT MELANOMA
     Dosage: 225 MG, Q3WK
     Route: 042
     Dates: start: 20170215, end: 20170305
  2. NIVOLUMAB [Suspect]
     Active Substance: NIVOLUMAB
     Indication: MALIGNANT MELANOMA
     Dosage: 75 MG, Q2WK
     Route: 042
     Dates: start: 20170215, end: 20170215

REACTIONS (4)
  - Systemic inflammatory response syndrome [Fatal]
  - Multiple organ dysfunction syndrome [Fatal]
  - Malignant neoplasm progression [Fatal]
  - Sepsis [Fatal]

NARRATIVE: CASE EVENT DATE: 20170305
